FAERS Safety Report 10749341 (Version 1)
Quarter: 2015Q1

REPORT INFORMATION
  Report Type: Spontaneous
  Country: US (occurrence: None)
  Receive Date: 20150120
  Receipt Date: 20150120
  Transmission Date: 20150721
  Serious: No
  Sender: FDA-Public Use
  Company Number: AEGR000784

PATIENT
  Age: 52 Year
  Sex: Female
  Weight: 69.4 kg

DRUGS (6)
  1. JUXTAPID [Suspect]
     Active Substance: LOMITAPIDE MESYLATE
     Indication: TYPE IIA HYPERLIPIDAEMIA
     Route: 048
     Dates: start: 20140509, end: 201409
  2. TOPROL (METOPROLOL SUCCINATE) [Concomitant]
  3. ASPIRIN (ACETYLSALICYLIC ACID) [Concomitant]
     Active Substance: ASPIRIN
  4. ZOLOFT [Concomitant]
     Active Substance: SERTRALINE HYDROCHLORIDE
  5. PLAVIX (CLOPIDOGREL BISULFATE) [Concomitant]
  6. DEPLIN (CALCIUM LEVOMEFOLATE) [Concomitant]

REACTIONS (5)
  - Fatigue [None]
  - Palpitations [None]
  - Pain [None]
  - Drug dose omission [None]
  - Headache [None]

NARRATIVE: CASE EVENT DATE: 201409
